FAERS Safety Report 20793446 (Version 1)
Quarter: 2022Q2

REPORT INFORMATION
  Report Type: Spontaneous
  Country: US (occurrence: US)
  Receive Date: 20220506
  Receipt Date: 20220506
  Transmission Date: 20220721
  Serious: No
  Sender: FDA-Public Use
  Company Number: US-BRISTOL-MYERS SQUIBB COMPANY-2022-031045

PATIENT
  Age: 63 Year
  Sex: Male

DRUGS (1)
  1. IDHIFA [Suspect]
     Active Substance: ENASIDENIB MESYLATE
     Indication: Acute promyelocytic leukaemia
     Route: 048
     Dates: start: 20220222

REACTIONS (2)
  - Nausea [Unknown]
  - Fatigue [Unknown]
